FAERS Safety Report 6168506-5 (Version None)
Quarter: 2009Q2

REPORT INFORMATION
  Report Type: 
  Country: None (occurrence: None)
  Receive Date: 20090427
  Receipt Date: 20090417
  Transmission Date: 20091009
  Serious: Yes (Hospitalization)
  Sender: FDA-Public Use
  Company Number: A0780403A

PATIENT
  Age: 68 Year
  Sex: Male

DRUGS (7)
  1. AVANDIA [Suspect]
     Indication: DIABETES MELLITUS
     Dosage: 4MG TWICE PER DAY
     Route: 048
     Dates: start: 20020101, end: 20070601
  2. METFORMIN HCL [Concomitant]
  3. TOPROL-XL [Concomitant]
  4. MINOXIDIL [Concomitant]
  5. NEXIUM [Concomitant]
  6. NORVASC [Concomitant]
  7. AVALIDE [Concomitant]

REACTIONS (5)
  - ANAEMIA [None]
  - ARRHYTHMIA [None]
  - CARDIAC FAILURE CONGESTIVE [None]
  - CARDIAC HYPERTROPHY [None]
  - CAROTID ARTERY DISEASE [None]
